FAERS Safety Report 25908784 (Version 1)
Quarter: 2025Q4

REPORT INFORMATION
  Report Type: Spontaneous
  Country: EU (occurrence: EU)
  Receive Date: 20251011
  Receipt Date: 20251011
  Transmission Date: 20260118
  Serious: Yes (Death, Hospitalization, Other)
  Sender: AMNEAL
  Company Number: EU-AMNEAL PHARMACEUTICALS-2025-AMRX-03854

PATIENT
  Sex: Male
  Weight: 3.6 kg

DRUGS (2)
  1. SIROLIMUS [Suspect]
     Active Substance: SIROLIMUS
     Indication: Rhabdomyoma
     Dosage: LOADING DOSE OF 6 MG, AT 23 WEEKS GESTATION
     Route: 064
  2. SIROLIMUS [Suspect]
     Active Substance: SIROLIMUS
     Dosage: 16 MILLIGRAM, 1X/DAY
     Route: 064

REACTIONS (3)
  - Capillary leak syndrome [Fatal]
  - Supraventricular tachycardia [Fatal]
  - Foetal exposure during pregnancy [Unknown]
